FAERS Safety Report 5642443-4 (Version None)
Quarter: 2008Q1

REPORT INFORMATION
  Report Type: 
  Country: None (occurrence: None)
  Receive Date: 20080227
  Receipt Date: 20080227
  Transmission Date: 20080703
  Serious: Yes (Other)
  Sender: FDA-Public Use
  Company Number: None

PATIENT
  Age: 67 Year
  Sex: Female

DRUGS (7)
  1. FOSAMAX [Suspect]
     Indication: OSTEOPOROSIS
     Dosage: 70MG WEEKLY
     Dates: start: 20040101, end: 20060606
  2. PROVERA [Concomitant]
  3. PREMARIN [Concomitant]
  4. CYMBALTA [Concomitant]
  5. LUNESTA [Concomitant]
  6. PERIOSTAT [Concomitant]
  7. LISINOPRIL [Concomitant]

REACTIONS (1)
  - OSTEONECROSIS [None]
